FAERS Safety Report 5092289-3 (Version None)
Quarter: 2006Q3

REPORT INFORMATION
  Report Type: 
  Country: None (occurrence: None)
  Receive Date: 20060825
  Receipt Date: 20060807
  Transmission Date: 20061208
  Serious: Yes (Hospitalization, Other)
  Sender: FDA-Public Use
  Company Number: US200608001775

PATIENT
  Age: 55 Year
  Sex: Female

DRUGS (1)
  1. EVISTA [Suspect]
     Indication: OSTEOPOROSIS
     Dosage: 60 MG, ORAL
     Route: 048
     Dates: start: 20000401, end: 20041201

REACTIONS (5)
  - ADENOCARCINOMA [None]
  - ENDOMETRIAL CANCER STAGE I [None]
  - ENDOMETRIAL HYPERPLASIA [None]
  - METRORRHAGIA [None]
  - UTERINE HAEMORRHAGE [None]
